FAERS Safety Report 9005929 (Version 1)
Quarter: 2013Q1

REPORT INFORMATION
  Report Type: Spontaneous
  Country: NL (occurrence: NL)
  Receive Date: 20130109
  Receipt Date: 20130109
  Transmission Date: 20140127
  Serious: Yes (Other)
  Sender: FDA-Public Use
  Company Number: NL-AMGEN-NLDSP2013001356

PATIENT
  Age: 75 Year
  Sex: Female

DRUGS (4)
  1. ENBREL [Suspect]
     Indication: RHEUMATOID ARTHRITIS
     Dosage: 50 MG, WEEKLY
     Dates: start: 2009
  2. MTX                                /00113801/ [Concomitant]
     Dosage: UNK
  3. FOLIC ACID [Concomitant]
     Dosage: UNK
  4. ANALGESICS [Concomitant]
     Dosage: UNK

REACTIONS (3)
  - Bladder prolapse [Not Recovered/Not Resolved]
  - Arthropathy [Not Recovered/Not Resolved]
  - Scar [Not Recovered/Not Resolved]
